FAERS Safety Report 5758154-0 (Version None)
Quarter: 2008Q2

REPORT INFORMATION
  Report Type: 
  Country: None (occurrence: None)
  Receive Date: 20080602
  Receipt Date: 20080602
  Transmission Date: 20081010
  Serious: No
  Sender: FDA-Public Use
  Company Number: None

PATIENT
  Sex: Male
  Weight: 105.7 kg

DRUGS (1)
  1. TEMOZOLOMIDE [Suspect]
     Dosage: 2300 MG

REACTIONS (1)
  - LYMPHOCYTE COUNT DECREASED [None]
